FAERS Safety Report 23114840 (Version 1)
Quarter: 2023Q4

REPORT INFORMATION
  Report Type: Spontaneous
  Country: GR (occurrence: GR)
  Receive Date: 20231027
  Receipt Date: 20231027
  Transmission Date: 20240109
  Serious: Yes (Other)
  Sender: FDA-Public Use
  Company Number: GR-AstraZeneca-2023A202540

PATIENT
  Age: 92 Year
  Sex: Female

DRUGS (5)
  1. NASONEX [Suspect]
     Active Substance: MOMETASONE FUROATE
     Indication: Rhinitis allergic
     Dosage: 1 SPRAY EVERY NIGHT
     Dates: start: 20230727, end: 202308
  2. CRESTOR [Suspect]
     Active Substance: ROSUVASTATIN CALCIUM
     Indication: Hyperlipidaemia
     Dosage: UNK
     Route: 048
     Dates: end: 202308
  3. HYDROCORTISONE [Suspect]
     Active Substance: HYDROCORTISONE
     Dosage: UNK
  4. HYDROCHLOROTHIAZIDE\VALSARTAN [Suspect]
     Active Substance: HYDROCHLOROTHIAZIDE\VALSARTAN
     Indication: Hypertension
     Dosage: UNK
  5. NEBIVOLOL HYDROCHLORIDE [Suspect]
     Active Substance: NEBIVOLOL HYDROCHLORIDE
     Indication: Hypertension
     Dosage: UNK

REACTIONS (5)
  - Illusion [Recovering/Resolving]
  - Syncope [Recovered/Resolved]
  - Burning sensation [Recovering/Resolving]
  - Flushing [Recovering/Resolving]
  - Headache [Recovering/Resolving]

NARRATIVE: CASE EVENT DATE: 20230727
